FAERS Safety Report 25429414 (Version 4)
Quarter: 2025Q3

REPORT INFORMATION
  Report Type: Report from Study
  Country: JP (occurrence: JP)
  Receive Date: 20250612
  Receipt Date: 20250805
  Transmission Date: 20251021
  Serious: Yes (Hospitalization)
  Sender: ABBVIE
  Company Number: JP-ABBVIE-6320117

PATIENT
  Age: 40 Year
  Sex: Male
  Weight: 51 kg

DRUGS (3)
  1. UPADACITINIB [Suspect]
     Active Substance: UPADACITINIB
     Indication: Crohn^s disease
     Route: 048
     Dates: start: 20250324, end: 20250521
  2. UPADACITINIB [Suspect]
     Active Substance: UPADACITINIB
     Indication: Crohn^s disease
     Route: 048
     Dates: start: 20250522, end: 20250609
  3. Colchichine [Concomitant]
     Indication: Crohn^s disease
     Route: 048
     Dates: start: 202108

REACTIONS (3)
  - Herpes zoster meningitis [Recovered/Resolved]
  - Herpes zoster [Recovered/Resolved]
  - Folliculitis [Recovered/Resolved]

NARRATIVE: CASE EVENT DATE: 20250608
